FAERS Safety Report 4396275-8 (Version None)
Quarter: 2004Q3

REPORT INFORMATION
  Report Type: 
  Country: None (occurrence: None)
  Receive Date: 20040709
  Receipt Date: 20040625
  Transmission Date: 20050211
  Serious: Yes (Life-Threatening, Hospitalization, Other)
  Sender: FDA-Public Use
  Company Number: 2004-BP-02513NB

PATIENT
  Age: 53 Year
  Sex: Male

DRUGS (4)
  1. PERSANTINE [Suspect]
     Indication: SCAN MYOCARDIAL PERFUSION
     Dosage: 35 MG
     Route: 042
     Dates: start: 20031126, end: 20031126
  2. SUNRYTHM (PILSICAINIDE HYDROCHLORIDE) (KA) [Concomitant]
  3. DIGOSIN (DIGOXIN) (TA) [Concomitant]
  4. BUFFERIN [Concomitant]

REACTIONS (4)
  - HEART RATE DECREASED [None]
  - HYPERHIDROSIS [None]
  - NAUSEA [None]
  - SINUS ARREST [None]
